FAERS Safety Report 4350619-1 (Version None)
Quarter: 2004Q2

REPORT INFORMATION
  Report Type: 
  Country: None (occurrence: None)
  Receive Date: 20040427
  Receipt Date: 20040128
  Transmission Date: 20050107
  Serious: Yes (Death)
  Sender: FDA-Public Use
  Company Number: 2004IM000179

PATIENT
  Sex: Male

DRUGS (1)
  1. ADVAFERON (A643_INTERFERON ALFACON-1) [Suspect]
     Indication: HEPATITIS C
     Dosage: 12 MU;QD; SUBCUTANEOUS
     Route: 058
     Dates: start: 20040101, end: 20040101

REACTIONS (1)
  - COMPLETED SUICIDE [None]
